FAERS Safety Report 13075527 (Version 1)
Quarter: 2016Q4

REPORT INFORMATION
  Report Type: Spontaneous
  Country: US (occurrence: US)
  Receive Date: 20161229
  Receipt Date: 20161229
  Transmission Date: 20170207
  Serious: Yes (Death, Hospitalization)
  Sender: FDA-Public Use
  Company Number: None

PATIENT
  Age: 35 Year
  Sex: Male
  Weight: 85.7 kg

DRUGS (2)
  1. BEVACIZUMAB [Suspect]
     Active Substance: BEVACIZUMAB
     Indication: GLIOBLASTOMA
     Dosage: ?          OTHER FREQUENCY:EVERY 2 WEEKS;?
     Route: 041
     Dates: start: 20161107, end: 20161219
  2. ASCORBIC ACID. [Suspect]
     Active Substance: ASCORBIC ACID
     Indication: GLIOBLASTOMA
     Dosage: ?          OTHER FREQUENCY:THREE TIMES A WEEK;?
     Route: 041
     Dates: start: 20161107, end: 20161223

REACTIONS (10)
  - Mydriasis [None]
  - Disorientation [None]
  - Cerebellar haemorrhage [None]
  - Memory impairment [None]
  - Headache [None]
  - Pain [None]
  - Dysarthria [None]
  - Brain herniation [None]
  - Muscular weakness [None]
  - Unresponsive to stimuli [None]

NARRATIVE: CASE EVENT DATE: 20161225
